FAERS Safety Report 8578881-X (Version None)
Quarter: 2012Q3

REPORT INFORMATION
  Report Type: 
  Country: None (occurrence: None)
  Receive Date: 20120808
  Receipt Date: 20120731
  Transmission Date: 20120928
  Serious: Yes (Death, Hospitalization)
  Sender: FDA-Public Use
  Company Number: JP-JNJFOC-20120502875

PATIENT
  Age: 63 Year
  Sex: Male
  Weight: 76 kg

DRUGS (9)
  1. DORAL [Suspect]
     Indication: PRODUCT USED FOR UNKNOWN INDICATION
     Route: 048
     Dates: end: 20120425
  2. AKINETON [Concomitant]
     Indication: SCHIZOPHRENIA
     Route: 048
  3. MAGMITT [Concomitant]
     Route: 048
  4. RISPERDAL [Suspect]
     Route: 048
     Dates: start: 20120418, end: 20120428
  5. NEOPHAGEN C [Concomitant]
     Route: 048
     Dates: end: 20120418
  6. AN UNKNOWN MEDICATION [Concomitant]
     Route: 065
  7. RISPERDAL [Suspect]
     Indication: SCHIZOPHRENIA
     Route: 048
     Dates: start: 20120412
  8. ZOLPIDEM [Suspect]
     Indication: PRODUCT USED FOR UNKNOWN INDICATION
     Route: 048
     Dates: end: 20120425
  9. RISPERDAL CONSTA [Suspect]
     Indication: SCHIZOPHRENIA
     Route: 030
     Dates: start: 20120511

REACTIONS (7)
  - RENAL FAILURE ACUTE [None]
  - BRONCHITIS [None]
  - PYREXIA [None]
  - FALL [None]
  - TREATMENT NONCOMPLIANCE [None]
  - RHABDOMYOLYSIS [None]
  - CONTUSION [None]
